FAERS Safety Report 5041161-3 (Version None)
Quarter: 2006Q2

REPORT INFORMATION
  Report Type: 
  Country: None (occurrence: None)
  Receive Date: 20060601
  Receipt Date: 20060222
  Transmission Date: 20061013
  Serious: No
  Sender: FDA-Public Use
  Company Number: 2006PV009085

PATIENT
  Sex: Male
  Weight: 94.3482 kg

DRUGS (4)
  1. BYETTA [Suspect]
     Indication: DIABETES MELLITUS NON-INSULIN-DEPENDENT
     Dosage: SEE IMAGE
     Route: 058
     Dates: start: 20060123, end: 20060221
  2. BYETTA [Suspect]
     Indication: DIABETES MELLITUS NON-INSULIN-DEPENDENT
     Dosage: SEE IMAGE
     Route: 058
     Dates: start: 20060222
  3. BYETTA [Suspect]
  4. AMARYL [Concomitant]

REACTIONS (7)
  - BLOOD GLUCOSE DECREASED [None]
  - DIZZINESS [None]
  - DRY SKIN [None]
  - NAUSEA [None]
  - PRURITUS [None]
  - SKIN TIGHTNESS [None]
  - TREMOR [None]
